FAERS Safety Report 23034644 (Version 1)
Quarter: 2023Q4

REPORT INFORMATION
  Report Type: Spontaneous
  Country: US (occurrence: US)
  Receive Date: 20231005
  Receipt Date: 20231005
  Transmission Date: 20240110
  Serious: Yes (Other)
  Sender: FDA-Public Use
  Company Number: US-INSUD PHARMA-2309US06740

PATIENT

DRUGS (2)
  1. TESTOSTERONE [Suspect]
     Active Substance: TESTOSTERONE
     Indication: Supplementation therapy
     Dosage: UNK
     Route: 065
  2. IBUPROFEN [Concomitant]
     Active Substance: IBUPROFEN
     Indication: Pain
     Dosage: UNK UNK, PRN

REACTIONS (6)
  - Central serous chorioretinopathy [Recovered/Resolved]
  - Retinal disorder [Recovered/Resolved]
  - Vision blurred [Recovered/Resolved]
  - Photopsia [Recovered/Resolved]
  - Polycythaemia vera [Recovered/Resolved]
  - Self-medication [Recovered/Resolved]
